FAERS Safety Report 9193957 (Version 1)
Quarter: 2013Q1

REPORT INFORMATION
  Report Type: Spontaneous
  Country: US (occurrence: US)
  Receive Date: 20130327
  Receipt Date: 20130327
  Transmission Date: 20140127
  Serious: No
  Sender: FDA-Public Use
  Company Number: US-ASTRAZENECA-2013SE16670

PATIENT
  Age: 85 Year
  Sex: Female
  Weight: 62.1 kg

DRUGS (2)
  1. CRESTOR [Suspect]
     Indication: HYPERLIPIDAEMIA
     Route: 048
  2. XARELTO [Concomitant]

REACTIONS (1)
  - Pruritus [Recovering/Resolving]
